FAERS Safety Report 24284664 (Version 2)
Quarter: 2025Q1

REPORT INFORMATION
  Report Type: Spontaneous
  Country: US (occurrence: US)
  Receive Date: 20240905
  Receipt Date: 20250207
  Transmission Date: 20250408
  Serious: No
  Sender: ASTELLAS
  Company Number: US-ASTELLAS-2024US022703

PATIENT

DRUGS (1)
  1. IZERVAY [Suspect]
     Active Substance: AVACINCAPTAD PEGOL SODIUM
     Indication: Product used for unknown indication
     Route: 050

REACTIONS (4)
  - Injury associated with device [Unknown]
  - Intercepted product preparation error [Unknown]
  - Inadequate aseptic technique in use of product [Unknown]
  - Device issue [Unknown]

NARRATIVE: CASE EVENT DATE: 20240807
